FAERS Safety Report 13152827 (Version 2)
Quarter: 2017Q1

REPORT INFORMATION
  Report Type: Spontaneous
  Country: IE (occurrence: IE)
  Receive Date: 20170126
  Receipt Date: 20170206
  Transmission Date: 20170428
  Serious: No
  Sender: FDA-Public Use
  Company Number: IE-JNJFOC-20170117377

PATIENT
  Sex: Male

DRUGS (2)
  1. CALPOL [Suspect]
     Active Substance: ACETAMINOPHEN
     Indication: PRODUCT USED FOR UNKNOWN INDICATION
     Route: 048
  2. CALPOL [Suspect]
     Active Substance: ACETAMINOPHEN
     Route: 048

REACTIONS (3)
  - Accidental overdose [Unknown]
  - Accidental exposure to product by child [Unknown]
  - Failure of child resistant mechanism for pharmaceutical product [Unknown]
